FAERS Safety Report 7870395-5 (Version None)
Quarter: 2011Q4

REPORT INFORMATION
  Report Type: 
  Country: None (occurrence: None)
  Receive Date: 20111029
  Receipt Date: 20110301
  Transmission Date: 20120403
  Serious: No
  Sender: FDA-Public Use
  Company Number: US-AMGEN-USASP2010010470

PATIENT
  Age: 20 Year
  Sex: Female

DRUGS (2)
  1. ENBREL [Suspect]
     Dates: start: 20101101, end: 20101201
  2. ENBREL [Suspect]
     Indication: PSORIASIS
     Dates: start: 20101030

REACTIONS (11)
  - DERMATITIS CONTACT [None]
  - DIZZINESS [None]
  - INJECTION SITE URTICARIA [None]
  - INJECTION SITE PAIN [None]
  - HEADACHE [None]
  - INJECTION SITE WARMTH [None]
  - INJECTION SITE ERYTHEMA [None]
  - INJECTION SITE PRURITUS [None]
  - INJECTION SITE REACTION [None]
  - INJECTION SITE SWELLING [None]
  - PSORIASIS [None]
